FAERS Safety Report 5388518-9 (Version None)
Quarter: 2007Q3

REPORT INFORMATION
  Report Type: 
  Country: None (occurrence: None)
  Receive Date: 20070716
  Receipt Date: 20070208
  Transmission Date: 20080115
  Serious: No
  Sender: FDA-Public Use
  Company Number: US-BRISTOL-MYERS SQUIBB COMPANY-13694930

PATIENT
  Age: 77 Year
  Sex: Male

DRUGS (6)
  1. SINEMET CR [Suspect]
     Route: 048
  2. PEPCID [Concomitant]
     Route: 042
  3. HYDROCORTISONE [Concomitant]
  4. LANTUS [Concomitant]
  5. HEPARIN [Concomitant]
  6. CIPRO [Concomitant]

REACTIONS (1)
  - WRONG TECHNIQUE IN DRUG USAGE PROCESS [None]
